FAERS Safety Report 16169784 (Version 2)
Quarter: 2019Q2

REPORT INFORMATION
  Report Type: Spontaneous
  Country: US (occurrence: US)
  Receive Date: 20190408
  Receipt Date: 20190412
  Transmission Date: 20190711
  Serious: No
  Sender: FDA-Public Use
  Company Number: US-PFIZER INC-2017078438

PATIENT
  Age: 57 Year
  Sex: Female
  Weight: 81.63 kg

DRUGS (32)
  1. TESSALON [Concomitant]
     Active Substance: BENZONATATE
     Indication: COUGH
     Dosage: 100 MG, AS NEEDED (TAKE 1 CAPSULE BY MOUTH 3 TIMES A DAY AS NEEDED FOR COUGH)
     Route: 048
  2. KENALOG [Concomitant]
     Active Substance: TRIAMCINOLONE ACETONIDE
     Dosage: UNK, 2X/DAY (TOP LOTN; APPLY TO AFFECTED AREA(S) 2 TIMES A DAY)
     Route: 061
  3. MYSOLINE [Concomitant]
     Active Substance: PRIMIDONE
     Dosage: 250 MG, DAILY
     Route: 048
  4. PNU-IMUNE [Concomitant]
     Active Substance: PNEUMOCOCCAL VACCINE, POLYVALENT 23
     Dosage: UNK
     Dates: start: 20110210
  5. PROPRANOLOL [Concomitant]
     Active Substance: PROPRANOLOL HYDROCHLORIDE
     Indication: ESSENTIAL TREMOR
     Dosage: UNK
  6. LIPITOR [Concomitant]
     Active Substance: ATORVASTATIN CALCIUM
     Indication: BLOOD CHOLESTEROL ABNORMAL
  7. VENTOLIN NEBULAS [Concomitant]
     Indication: WHEEZING
     Dosage: UNK, AS NEEDED (INHALE CONTENTS OF 1 VIAL VIA NEBULIZER EVERY 4 HOURS AS NEEDED)
     Route: 055
  8. LYRICA [Suspect]
     Active Substance: PREGABALIN
     Indication: PAIN IN EXTREMITY
  9. LIPITOR [Concomitant]
     Active Substance: ATORVASTATIN CALCIUM
     Indication: MYOCARDIAL INFARCTION
     Dosage: UNK, DAILY (TAKE ONE-HALF TABLET BY MOUTH DAILY)
     Route: 048
  10. LAMICTAL [Concomitant]
     Active Substance: LAMOTRIGINE
     Indication: DEPRESSION
     Dosage: 20 MG, 2X/DAY
     Route: 048
  11. METOCLOPRAMIDE HCL [Concomitant]
     Active Substance: METOCLOPRAMIDE HYDROCHLORIDE
     Dosage: UNK
     Dates: start: 20110809
  12. PROVENTIL [Concomitant]
     Active Substance: ALBUTEROL
     Indication: WHEEZING
     Dosage: UNK, AS NEEDED (INHALE CONTENTS OF 1 VIAL VIA NEBULIZER EVERY 4 HOURS AS NEEDED)
     Route: 055
  13. NAPROSYN E [Concomitant]
     Active Substance: NAPROXEN
     Indication: PAIN
     Dosage: 500 MG, AS NEEDED (1 TABLET BY MOUTH 2 TIMES A DAY WITH FOOD AS NEEDED)
     Route: 048
  14. DELTASONE [PREDNISONE] [Concomitant]
     Dosage: 20 MG, 2X/DAY (TAKE 1 TABLET BY MOUTH 2 TIMES A DAY FOR 5 DAYS)
     Route: 048
  15. LEVAQUIN [Concomitant]
     Active Substance: LEVOFLOXACIN
     Dosage: 750 MG, DAILY (SIG: TAKE 1 TABLET BY MOUTH DAILY FOR 5 DAYS)
     Route: 048
  16. VENTOLIN HFA [Concomitant]
     Active Substance: ALBUTEROL SULFATE
     Indication: DYSPNOEA
     Dosage: UNK, AS NEEDED (INHALE 2 PUFFS ORALLY EVERY 4 HOURS AS NEEDED)
     Route: 055
  17. SEROQUEL [Concomitant]
     Active Substance: QUETIAPINE FUMARATE
     Indication: DEPRESSION
     Dosage: UNK UNK, DAILY (TAKE 2 TO 2 + 1/2 TABLETS )
     Route: 048
  18. PRED FORT [Concomitant]
     Active Substance: PREDNISOLONE ACETATE
     Dosage: 1 GTT, UNK (INSTILL ONE DROP IN THE RIGHT EYE AS DIRECTED)
     Route: 047
  19. CARBOXYMETHYLCELLULOSE [Concomitant]
     Active Substance: CARBOXYMETHYLCELLULOSE
     Dosage: UNK, AS NEEDED (APPLY TO AFFECTED EYES AS OFTEN AS EVERY HOUR AS NEEDED)
     Route: 047
  20. METOCLOPRAMIDE HCL [Concomitant]
     Active Substance: METOCLOPRAMIDE HYDROCHLORIDE
     Dosage: UNK
     Dates: start: 20110613
  21. ADACEL TDAP [Concomitant]
     Active Substance: TETANUS TOXOID, REDUCED DIPHTHERIA TOXOID AND ACELLULAR PERTUSSIS VACCINE ADSORBED, TDAP
     Dosage: UNK
     Dates: start: 20110210
  22. QVAR [Concomitant]
     Active Substance: BECLOMETHASONE DIPROPIONATE
     Indication: ASTHMA
     Dosage: UNK (INHALE 1 PUFF BY MOUTH EVERY MORNING AND 2 PUFFS EVERY EVENING )
     Route: 055
  23. INDERAL [Concomitant]
     Active Substance: PROPRANOLOL HYDROCHLORIDE
     Dosage: 20 MG, 2X/DAY
     Route: 048
  24. RETIN-A [Concomitant]
     Active Substance: TRETINOIN
     Dosage: UNK UNK, DAILY (AFFECTED AREA(S) AT BEDTIME START SLOWLY AND APPLY A PEA SIZED AMOUNT TO ENTIRE FACE
     Route: 061
  25. SEROQUEL [Concomitant]
     Active Substance: QUETIAPINE FUMARATE
     Dosage: UNK (THREE OF THEM AT NIGHT)
  26. SYNTHROID [Concomitant]
     Active Substance: LEVOTHYROXINE SODIUM
     Dosage: 50 UG, DAILY
     Route: 048
  27. PRIMIDONE. [Concomitant]
     Active Substance: PRIMIDONE
     Indication: TREMOR
     Dosage: UNK
  28. LYRICA [Suspect]
     Active Substance: PREGABALIN
     Indication: FIBROMYALGIA
     Dosage: 75 MG, 3X/DAY
     Route: 048
     Dates: start: 2012
  29. LIPITOR [Concomitant]
     Active Substance: ATORVASTATIN CALCIUM
     Indication: CEREBROVASCULAR ACCIDENT
     Dosage: 40 MG, DAILY
     Route: 048
  30. LEVOTHROID [Concomitant]
     Active Substance: LEVOTHYROXINE SODIUM
     Dosage: 50 UG, DAILY
     Route: 048
  31. LAMICTAL [Concomitant]
     Active Substance: LAMOTRIGINE
     Indication: BIPOLAR DISORDER
  32. MIRENA [Concomitant]
     Active Substance: LEVONORGESTREL
     Dosage: 20 UG, (AS DIRECTED NOW)
     Route: 015

REACTIONS (1)
  - Treatment failure [Unknown]
